FAERS Safety Report 8003552-8 (Version None)
Quarter: 2011Q4

REPORT INFORMATION
  Report Type: 
  Country: None (occurrence: None)
  Receive Date: 20111222
  Receipt Date: 20111125
  Transmission Date: 20120403
  Serious: Yes (Death)
  Sender: FDA-Public Use
  Company Number: CA-PFIZER INC-K200900455

PATIENT
  Age: 83 Year
  Sex: Female

DRUGS (20)
  1. QUININE [Suspect]
     Dosage: UNK
  2. ALLOPURINOL [Suspect]
     Dosage: UNK
  3. IBUPROFEN [Suspect]
     Dosage: UNK
  4. TEMAZEPAM [Suspect]
     Dosage: UNK
  5. MOTRIN IB [Suspect]
     Dosage: UNK
  6. HYDROCHLOROTHIAZIDE [Suspect]
     Dosage: UNK
  7. LIPITOR [Suspect]
     Dosage: UNK
  8. ALTACE [Suspect]
     Dosage: UNK
  9. ASPIRIN [Suspect]
     Dosage: UNK
  10. METOPROLOL [Suspect]
     Dosage: UNK
  11. PLAVIX [Suspect]
     Dosage: UNK
  12. TYLENOL W/ CODEINE NO. 2 [Suspect]
     Dosage: UNK
  13. NIFEDIPINE [Suspect]
     Dosage: UNK
  14. TYLENOL W/ CODEINE NO. 3 [Suspect]
  15. SERTRALINE HYDROCHLORIDE [Suspect]
     Dosage: UNK
  16. GLYCERIN /00200601/ [Suspect]
     Dosage: UNK
  17. ROBAXACET [Suspect]
     Dosage: UNK
  18. BETASERON [Suspect]
     Dosage: UNK
     Route: 058
  19. LACTULOSE [Suspect]
     Dosage: UNK
  20. TERAZOSIN HCL [Suspect]
     Dosage: UNK

REACTIONS (6)
  - JAUNDICE [None]
  - MALAISE [None]
  - PANCREATIC CARCINOMA [None]
  - MUSCULOSKELETAL STIFFNESS [None]
  - BACK PAIN [None]
  - ABDOMINAL PAIN [None]
